FAERS Safety Report 6102936-2 (Version None)
Quarter: 2009Q1

REPORT INFORMATION
  Report Type: 
  Country: None (occurrence: None)
  Receive Date: 20090227
  Receipt Date: 20090219
  Transmission Date: 20090719
  Serious: Yes (Hospitalization)
  Sender: FDA-Public Use
  Company Number: DSA_32420_2008

PATIENT
  Sex: Female

DRUGS (7)
  1. LORAZEPAM [Suspect]
     Dosage: 10 MG 1X, NOT THE PRESCRIBED AMOUTN ORAL
     Route: 048
     Dates: start: 20080905, end: 20080905
  2. CITALOPRAM HYDROBROMIDE [Suspect]
     Dosage: 200 MG 1X, NOT THE PRESCRIBED AMOUNT ORAL
     Route: 048
     Dates: start: 20080905, end: 20080905
  3. EDRONAX /01350601/ (ENDRONAX - REBOXETINE) (NOT SPECIFIED) [Suspect]
     Dosage: 200 MG 1X, NOT THE PRESCRIBED AMOUNT ORAL
     Route: 048
     Dates: start: 20080905, end: 20080905
  4. IBUPROFEN [Suspect]
     Dosage: 1200 MG 1X, NOT THE PRESCRIBED AMOUNT ORAL
     Route: 048
     Dates: start: 20080905, end: 20080905
  5. ACETAMINOPHEN [Suspect]
     Dosage: 2000 MG 1X, NOT THE PRESCRIBED AMOUNT ORAL
     Route: 048
     Dates: start: 20080905, end: 20080905
  6. RITALIN [Suspect]
     Dosage: 4 DF 1X, NOT PRESCRIBED AMOUNT ORAL
     Route: 048
     Dates: start: 20080905, end: 20080905
  7. VALORON /00205402/ (VALORON - TILIDINE HYDROCHLORIDE) (NOT SPECIFIED) [Suspect]
     Dosage: 5-6 TABLETS - NOT THE PRESCRIBED AMOUNT ORAL
     Route: 048
     Dates: start: 20080905, end: 20080905

REACTIONS (6)
  - DIPLOPIA [None]
  - FATIGUE [None]
  - MULTIPLE DRUG OVERDOSE INTENTIONAL [None]
  - NYSTAGMUS [None]
  - SOMNOLENCE [None]
  - SUICIDE ATTEMPT [None]
